FAERS Safety Report 12553279 (Version 1)
Quarter: 2016Q3

REPORT INFORMATION
  Report Type: Spontaneous
  Country: CA (occurrence: CA)
  Receive Date: 20160713
  Receipt Date: 20160713
  Transmission Date: 20161109
  Serious: Yes (Other)
  Sender: FDA-Public Use
  Company Number: CA-JNJFOC-20160705637

PATIENT

DRUGS (4)
  1. AZATHIOPRINE. [Concomitant]
     Active Substance: AZATHIOPRINE
     Route: 065
  2. MERCAPTOPURINE. [Concomitant]
     Active Substance: MERCAPTOPURINE
     Route: 065
  3. METHOTREXATE. [Concomitant]
     Active Substance: METHOTREXATE
     Route: 065
  4. INFLIXIMAB, RECOMBINANT [Suspect]
     Active Substance: INFLIXIMAB
     Indication: CROHN^S DISEASE
     Route: 042

REACTIONS (10)
  - Anaphylactic reaction [Unknown]
  - Adverse event [Unknown]
  - Orchitis [Unknown]
  - Psoriasis [Unknown]
  - Lupus-like syndrome [Unknown]
  - Hypersensitivity [Unknown]
  - Staphylococcal infection [Unknown]
  - Crohn^s disease [Unknown]
  - Therapeutic response decreased [Unknown]
  - Empyema [Unknown]
